FAERS Safety Report 14939769 (Version 1)
Quarter: 2018Q2

REPORT INFORMATION
  Report Type: Spontaneous
  Country: JP (occurrence: JP)
  Receive Date: 20180525
  Receipt Date: 20180525
  Transmission Date: 20180711
  Serious: Yes (Other)
  Sender: FDA-Public Use
  Company Number: JP-IMPAX LABORATORIES, INC-2018-IPXL-01729

PATIENT
  Age: 71 Year
  Sex: Male

DRUGS (2)
  1. ADRENACLICK [Suspect]
     Active Substance: EPINEPHRINE
     Indication: ANAPHYLACTIC REACTION
     Dosage: UNK
     Route: 065
  2. ADRENACLICK [Suspect]
     Active Substance: EPINEPHRINE
     Indication: HYPOTENSION

REACTIONS (3)
  - Drug ineffective [Unknown]
  - Left ventricle outflow tract obstruction [Unknown]
  - Systolic anterior motion of mitral valve [Unknown]
